FAERS Safety Report 23221555 (Version 1)
Quarter: 2023Q4

REPORT INFORMATION
  Report Type: Spontaneous
  Country: CN (occurrence: None)
  Receive Date: 20231123
  Receipt Date: 20231123
  Transmission Date: 20240109
  Serious: Yes (Other)
  Sender: FDA-Public Use
  Company Number: CN-ROCHE-3462542

PATIENT
  Age: 62 Year
  Sex: Female
  Weight: 51 kg

DRUGS (1)
  1. MABTHERA [Suspect]
     Active Substance: RITUXIMAB
     Indication: Lymphoma
     Route: 041
     Dates: start: 20231012

REACTIONS (1)
  - Myelosuppression [Recovering/Resolving]

NARRATIVE: CASE EVENT DATE: 20231018
